FAERS Safety Report 10249539 (Version 5)
Quarter: 2015Q2

REPORT INFORMATION
  Report Type: Spontaneous
  Country: US (occurrence: US)
  Receive Date: 20140620
  Receipt Date: 20150429
  Transmission Date: 20150821
  Serious: No
  Sender: FDA-Public Use
  Company Number: US-PFIZER INC-2014167145

PATIENT
  Age: 77 Year
  Sex: Male
  Weight: 145 kg

DRUGS (6)
  1. MOUTH WASH [Concomitant]
     Dosage: UNK
  2. FOLIC ACID. [Concomitant]
     Active Substance: FOLIC ACID
     Dosage: UNK
  3. SUTENT [Suspect]
     Active Substance: SUNITINIB MALATE
     Dosage: 50 MG, 1X/DAY (CYCLIC)
     Route: 048
     Dates: end: 20150220
  4. SUTENT [Suspect]
     Active Substance: SUNITINIB MALATE
     Indication: RENAL CELL CARCINOMA
     Dosage: 50 MG, 4 WEEKS ON AND 2 WEEKS OFF CYCLE
     Route: 048
     Dates: start: 20120813, end: 20121004
  5. SUTENT [Suspect]
     Active Substance: SUNITINIB MALATE
     Dosage: 50 MG, CYCLIC (4 WEEK ON AND 2 WEEKS OFF CYCLE)
     Route: 048
     Dates: start: 20140522, end: 20150302
  6. METOPROLOL [Concomitant]
     Active Substance: METOPROLOL
     Dosage: UNK

REACTIONS (8)
  - Oral pain [Unknown]
  - Oral mucosal blistering [Unknown]
  - Disease progression [Unknown]
  - Renal cell carcinoma [Unknown]
  - Glossodynia [Unknown]
  - Weight decreased [Unknown]
  - Decreased appetite [Unknown]
  - Glossitis [Unknown]

NARRATIVE: CASE EVENT DATE: 201503
